FAERS Safety Report 20219832 (Version 1)
Quarter: 2021Q4

REPORT INFORMATION
  Report Type: Spontaneous
  Country: US (occurrence: US)
  Receive Date: 20211222
  Receipt Date: 20211222
  Transmission Date: 20220303
  Serious: Yes (Death, Other)
  Sender: FDA-Public Use
  Company Number: US-009507513-2112USA006938

PATIENT
  Age: 58 Year
  Sex: Male

DRUGS (6)
  1. PRINIVIL [Suspect]
     Active Substance: LISINOPRIL
     Route: 048
  2. PRAZOSIN [Suspect]
     Active Substance: PRAZOSIN
  3. HYDROXYZINE [Suspect]
     Active Substance: HYDROXYZINE HYDROCHLORIDE
  4. MIRTAZAPINE [Suspect]
     Active Substance: MIRTAZAPINE
     Route: 048
  5. GABAPENTIN [Suspect]
     Active Substance: GABAPENTIN
  6. ALCOHOL [Suspect]
     Active Substance: ALCOHOL

REACTIONS (1)
  - Suspected suicide [Fatal]
